FAERS Safety Report 8046636-0 (Version None)
Quarter: 2012Q1

REPORT INFORMATION
  Report Type: 
  Country: None (occurrence: None)
  Receive Date: 20120114
  Receipt Date: 20120109
  Transmission Date: 20120608
  Serious: No
  Sender: FDA-Public Use
  Company Number: US-BAYER-2012-003396

PATIENT
  Sex: Female
  Weight: 68.027 kg

DRUGS (3)
  1. LISINOPRIL [Concomitant]
  2. ALEVE (CAPLET) [Suspect]
     Dosage: 3 DF, QD
  3. LEVOTHYROXINE SODIUM [Concomitant]

REACTIONS (1)
  - NO ADVERSE EVENT [None]
